FAERS Safety Report 21255193 (Version 3)
Quarter: 2022Q4

REPORT INFORMATION
  Report Type: Spontaneous
  Country: JP (occurrence: JP)
  Receive Date: 20220825
  Receipt Date: 20221210
  Transmission Date: 20230113
  Serious: Yes (Death, Hospitalization, Other)
  Sender: FDA-Public Use
  Company Number: JP-ONO-2022JP022651

PATIENT
  Age: 6 Decade
  Sex: Female

DRUGS (7)
  1. OPDIVO [Suspect]
     Active Substance: NIVOLUMAB
     Indication: Gastric cancer
     Dosage: UNK, A TOTAL OF 8 COURSES
     Route: 041
     Dates: start: 20220108, end: 20220528
  2. OXALIPLATIN [Concomitant]
     Active Substance: OXALIPLATIN
     Indication: Gastric cancer
     Dosage: UNK, A TOTAL OF 16 COURSES
     Route: 065
     Dates: start: 20210114, end: 20210924
  3. OXALIPLATIN [Concomitant]
     Active Substance: OXALIPLATIN
     Dosage: UNK, A TOTAL OF 8 COURSES
     Route: 065
     Dates: start: 20220108, end: 20220528
  4. LEVOLEUCOVORIN CALCIUM [Concomitant]
     Active Substance: LEVOLEUCOVORIN CALCIUM
     Indication: Gastric cancer
     Dosage: UNK, A TOTAL OF 16 COURSES
     Route: 065
     Dates: start: 20210114, end: 20210924
  5. LEVOLEUCOVORIN CALCIUM [Concomitant]
     Active Substance: LEVOLEUCOVORIN CALCIUM
     Dosage: UNK, A TOTAL OF 8 COURSES
     Route: 065
     Dates: start: 20220108, end: 20220528
  6. FLUOROURACIL [Concomitant]
     Active Substance: FLUOROURACIL
     Indication: Gastric cancer
     Dosage: UNK, A TOTAL OF 16COURSES
     Route: 065
     Dates: start: 20210114, end: 20210924
  7. FLUOROURACIL [Concomitant]
     Active Substance: FLUOROURACIL
     Dosage: UNK, A TOTAL OF 8 COURSES
     Route: 065
     Dates: start: 20220108, end: 20220528

REACTIONS (2)
  - Adrenocorticotropic hormone deficiency [Unknown]
  - Malignant neoplasm progression [Fatal]

NARRATIVE: CASE EVENT DATE: 20220701
